FAERS Safety Report 25335839 (Version 4)
Quarter: 2025Q3

REPORT INFORMATION
  Report Type: Report from Study
  Country: CA (occurrence: CA)
  Receive Date: 20250520
  Receipt Date: 20250813
  Transmission Date: 20251020
  Serious: Yes (Other)
  Sender: TAKEDA
  Company Number: CA-TAKEDA-2024TUS094391

PATIENT
  Sex: Female

DRUGS (14)
  1. VEDOLIZUMAB [Suspect]
     Active Substance: VEDOLIZUMAB
     Indication: Crohn^s disease
  2. VEDOLIZUMAB [Suspect]
     Active Substance: VEDOLIZUMAB
     Dosage: 300 MILLIGRAM, Q4WEEKS
     Dates: start: 20211122
  3. VEDOLIZUMAB [Suspect]
     Active Substance: VEDOLIZUMAB
     Dosage: 300 MILLIGRAM, Q4WEEKS
  4. VEDOLIZUMAB [Suspect]
     Active Substance: VEDOLIZUMAB
     Dosage: 300 MILLIGRAM, Q4WEEKS
  5. VEDOLIZUMAB [Suspect]
     Active Substance: VEDOLIZUMAB
     Dosage: 300 MILLIGRAM, Q4WEEKS
  6. VEDOLIZUMAB [Suspect]
     Active Substance: VEDOLIZUMAB
     Dosage: 300 MILLIGRAM, Q4WEEKS
  7. VEDOLIZUMAB [Suspect]
     Active Substance: VEDOLIZUMAB
     Dosage: 300 MILLIGRAM, Q4WEEKS
  8. VEDOLIZUMAB [Suspect]
     Active Substance: VEDOLIZUMAB
     Dosage: 300 MILLIGRAM, Q4WEEKS
  9. BUDESONIDE [Concomitant]
     Active Substance: BUDESONIDE
  10. PREDNISONE [Concomitant]
     Active Substance: PREDNISONE
  11. HUMIRA [Concomitant]
     Active Substance: ADALIMUMAB
     Dates: start: 20131101, end: 20201101
  12. STELARA [Concomitant]
     Active Substance: USTEKINUMAB
     Dates: start: 20201101, end: 20201201
  13. REMICADE [Concomitant]
     Active Substance: INFLIXIMAB
     Dates: start: 20101101, end: 20131101
  14. IMURAN [Concomitant]
     Active Substance: AZATHIOPRINE
     Dates: start: 20100501, end: 20101101

REACTIONS (5)
  - Morning sickness [Not Recovered/Not Resolved]
  - Stress [Unknown]
  - Headache [Unknown]
  - Pregnancy [Recovered/Resolved]
  - Maternal exposure during breast feeding [Recovering/Resolving]
